FAERS Safety Report 8638232 (Version 2)
Quarter: 2012Q4

REPORT INFORMATION
  Report Type: 
  Country: DE (occurrence: DE)
  Receive Date: 20120627
  Receipt Date: 20120914
  Transmission Date: 20130627
  Serious: Yes (Other)
  Sender: FDA-Public Use
  Company Number: PHHY2012DE048619

PATIENT
  Sex: Male

DRUGS (1)
  1. GLIVEC [Suspect]
     Indication: CHRONIC MYELOID LEUKAEMIA
     Dosage: 400 mg, QD
     Route: 048
     Dates: start: 2010

REACTIONS (5)
  - Otitis media [Recovered/Resolved]
  - Areflexia [Not Recovered/Not Resolved]
  - Polyneuropathy [Recovering/Resolving]
  - Paraesthesia [Recovering/Resolving]
  - Overdose [None]
